FAERS Safety Report 14471202 (Version 1)
Quarter: 2018Q1

REPORT INFORMATION
  Report Type: Spontaneous
  Country: US (occurrence: US)
  Receive Date: 20180131
  Receipt Date: 20180131
  Transmission Date: 20180509
  Serious: Yes (Death, Other)
  Sender: FDA-Public Use
  Company Number: US-PFIZER INC-2018040768

PATIENT
  Age: 75 Year
  Sex: Male

DRUGS (1)
  1. SUTENT [Suspect]
     Active Substance: SUNITINIB MALATE
     Indication: PULMONARY MASS
     Dosage: 50 MG, CYCLIC (ONCE DAILY ON DAYS 1-14 EVERY 3 WEEKS)
     Route: 048
     Dates: start: 20170721, end: 20171215

REACTIONS (2)
  - Death [Fatal]
  - Product use in unapproved indication [Unknown]
